FAERS Safety Report 7914032-X (Version None)
Quarter: 2011Q4

REPORT INFORMATION
  Report Type: 
  Country: None (occurrence: None)
  Receive Date: 20111115
  Receipt Date: 20111110
  Transmission Date: 20120403
  Serious: Yes (Other)
  Sender: FDA-Public Use
  Company Number: BE-PFIZER INC-2011241951

PATIENT
  Age: 32 Year
  Sex: Male

DRUGS (4)
  1. IBUPROFEN [Interacting]
  2. OXYBUTYNIN [Concomitant]
  3. PHENELZINE SULFATE [Suspect]
     Indication: MAJOR DEPRESSION
     Dosage: 75 MG, 1X/DAY
     Route: 048
     Dates: start: 20110831, end: 20111011
  4. ALLOPURINOL [Concomitant]

REACTIONS (2)
  - HYPERTENSION [None]
  - DRUG INTERACTION [None]
